FAERS Safety Report 15328010 (Version 1)
Quarter: 2018Q3

REPORT INFORMATION
  Report Type: Spontaneous
  Country: GB (occurrence: GB)
  Receive Date: 20180828
  Receipt Date: 20180828
  Transmission Date: 20181010
  Serious: Yes (Other)
  Sender: FDA-Public Use
  Company Number: GB-009507513-2009SP039138

PATIENT
  Age: 30 Year
  Sex: Female

DRUGS (6)
  1. TOPIRAMATE. [Interacting]
     Active Substance: TOPIRAMATE
     Dosage: 100 MG, BID
     Route: 065
     Dates: start: 20091003
  2. TOPIRAMATE. [Interacting]
     Active Substance: TOPIRAMATE
     Indication: INTRACRANIAL PRESSURE INCREASED
     Dosage: 25 MG, BID
     Route: 065
     Dates: start: 20091003
  3. TOPIRAMATE. [Interacting]
     Active Substance: TOPIRAMATE
     Dosage: 200 MG, QD
     Route: 065
     Dates: start: 20091003
  4. TOPIRAMATE. [Interacting]
     Active Substance: TOPIRAMATE
     Dosage: 50 MG, QD
     Route: 065
     Dates: start: 20091003
  5. IMPLANON [Interacting]
     Active Substance: ETONOGESTREL
     Dosage: 1 DF, UNK
     Route: 065
     Dates: start: 20091124
  6. IMPLANON [Suspect]
     Active Substance: ETONOGESTREL
     Indication: CONTRACEPTION
     Dosage: 1 DF, UNK
     Route: 065
     Dates: start: 20080912

REACTIONS (5)
  - Abortion spontaneous [Recovered/Resolved]
  - Amenorrhoea [Unknown]
  - Exposure during pregnancy [Recovered/Resolved]
  - Pregnancy with implant contraceptive [Recovered/Resolved]
  - Drug interaction [Unknown]

NARRATIVE: CASE EVENT DATE: 200911
